FAERS Safety Report 5800701-4 (Version None)
Quarter: 2008Q3

REPORT INFORMATION
  Report Type: 
  Country: None (occurrence: None)
  Receive Date: 20080703
  Receipt Date: 20080624
  Transmission Date: 20090109
  Serious: Yes (Hospitalization)
  Sender: FDA-Public Use
  Company Number: US-GENENTECH-263351

PATIENT
  Sex: Female
  Weight: 15.8 kg

DRUGS (1)
  1. HUMATROPE [Suspect]
     Indication: TURNER'S SYNDROME
     Dosage: 1 MG, 6/WEEK
     Dates: start: 20041115

REACTIONS (2)
  - ARTHRALGIA [None]
  - ARTHRITIS [None]
